FAERS Safety Report 9687145 (Version 1)
Quarter: 2013Q4

REPORT INFORMATION
  Report Type: Spontaneous
  Country: US (occurrence: US)
  Receive Date: 20131113
  Receipt Date: 20131113
  Transmission Date: 20140711
  Serious: Yes (Other)
  Sender: FDA-Public Use
  Company Number: US-ALLERGAN-1317711US

PATIENT
  Age: 83 Year
  Sex: Female

DRUGS (1)
  1. BOTOX [Suspect]
     Indication: STRABISMUS
     Dosage: UNK

REACTIONS (3)
  - Glaucoma [Unknown]
  - Headache [Unknown]
  - Vision blurred [Unknown]
